FAERS Safety Report 9129218 (Version 1)
Quarter: 2013Q1

REPORT INFORMATION
  Report Type: Spontaneous
  Country: US (occurrence: US)
  Receive Date: 20130228
  Receipt Date: 20130228
  Transmission Date: 20140127
  Serious: No
  Sender: FDA-Public Use
  Company Number: US-ABBOTT-13P-163-1038544-00

PATIENT
  Age: 57 Year
  Sex: Male
  Weight: 89.44 kg

DRUGS (11)
  1. ANDROGEL [Suspect]
     Indication: BLOOD TESTOSTERONE DECREASED
     Dosage: TWO PUMP ACTUATIONS PER DAY
     Dates: start: 201211
  2. TRICOR [Concomitant]
     Indication: BLOOD CHOLESTEROL INCREASED
  3. VYTORIN [Concomitant]
     Indication: BLOOD CHOLESTEROL INCREASED
  4. METFORMIN [Concomitant]
     Indication: DIABETES MELLITUS
  5. GLYMIPERIDE [Concomitant]
     Indication: DIABETES MELLITUS
  6. VITAMIN D [Concomitant]
     Indication: PRODUCT USED FOR UNKNOWN INDICATION
  7. DIOVAN [Concomitant]
     Indication: HYPERTENSION
  8. BYDUREON [Concomitant]
     Indication: DIABETES MELLITUS
  9. BABY ASPIRIN [Concomitant]
     Indication: PRODUCT USED FOR UNKNOWN INDICATION
  10. DORYX [Concomitant]
     Indication: ROSACEA
  11. LEVITRA [Concomitant]
     Indication: ERECTILE DYSFUNCTION

REACTIONS (1)
  - Mood swings [Not Recovered/Not Resolved]
